FAERS Safety Report 16874449 (Version 1)
Quarter: 2019Q4

REPORT INFORMATION
  Report Type: Spontaneous
  Country: BR (occurrence: BR)
  Receive Date: 20191001
  Receipt Date: 20191001
  Transmission Date: 20200122
  Serious: Yes (Other)
  Sender: FDA-Public Use
  Company Number: BR-GLAXOSMITHKLINE-BR2019AMR176828

PATIENT
  Sex: Female

DRUGS (1)
  1. RELVAR ELLIPTA [Suspect]
     Active Substance: FLUTICASONE FUROATE\VILANTEROL TRIFENATATE
     Indication: PRODUCT USED FOR UNKNOWN INDICATION
     Dosage: UNK

REACTIONS (10)
  - Dizziness [Unknown]
  - Anxiety [Unknown]
  - Judgement impaired [Unknown]
  - Palpitations [Unknown]
  - Asthenia [Unknown]
  - Feeling cold [Unknown]
  - Fear [Unknown]
  - Lower respiratory tract infection [Unknown]
  - Tremor [Unknown]
  - Feeling abnormal [Unknown]
